FAERS Safety Report 7437074-X (Version None)
Quarter: 2011Q2

REPORT INFORMATION
  Report Type: 
  Country: None (occurrence: None)
  Receive Date: 20110426
  Receipt Date: 20110413
  Transmission Date: 20111010
  Serious: Yes (Other)
  Sender: FDA-Public Use
  Company Number: PHHY2011CH32116

PATIENT
  Age: 66 Year
  Sex: Female

DRUGS (7)
  1. OLFEN [Concomitant]
     Dosage: 75 MG, QD
     Dates: start: 20110301, end: 20110301
  2. ACLASTA [Suspect]
     Dosage: 5 MG, UNK
     Route: 042
     Dates: start: 20110131
  3. PREDNISONE [Concomitant]
     Dosage: 5 MG, UNK
     Route: 048
  4. OMEPRAZOLE [Concomitant]
     Dosage: 20 MG, UNK
  5. PREDNISONE [Concomitant]
     Dosage: 15 MG, UNK
     Route: 048
     Dates: start: 20110301, end: 20110301
  6. VI-DE 3 [Concomitant]
     Dosage: 10 DROPS
  7. PLAQUENIL [Concomitant]
     Dosage: 200 MG, UNK

REACTIONS (5)
  - JOINT STIFFNESS [None]
  - ARTHRALGIA [None]
  - PYREXIA [None]
  - MYALGIA [None]
  - SYNOVITIS [None]
